FAERS Safety Report 10244875 (Version 1)
Quarter: 2014Q2

REPORT INFORMATION
  Report Type: Spontaneous
  Country: US (occurrence: US)
  Receive Date: 20140618
  Receipt Date: 20140618
  Transmission Date: 20141212
  Serious: No
  Sender: FDA-Public Use
  Company Number: US-GALDERMA-US14001267

PATIENT
  Sex: Female

DRUGS (1)
  1. MIRVASO (BRIMONIDINE) TOPICAL GEL, 0.33% [Suspect]
     Dosage: 0.33%
     Route: 061

REACTIONS (6)
  - Condition aggravated [Unknown]
  - Rash macular [Unknown]
  - Feeling hot [Unknown]
  - Pruritus [Unknown]
  - Erythema [Unknown]
  - Skin burning sensation [Unknown]
